FAERS Safety Report 5837858-5 (Version None)
Quarter: 2008Q3

REPORT INFORMATION
  Report Type: 
  Country: None (occurrence: None)
  Receive Date: 20080808
  Receipt Date: 20080220
  Transmission Date: 20090109
  Serious: No
  Sender: FDA-Public Use
  Company Number: A0710773A

PATIENT
  Age: 60 Year
  Sex: Female

DRUGS (10)
  1. PAXIL [Suspect]
     Indication: PANIC DISORDER
     Dosage: 25MG PER DAY
     Route: 048
  2. TOPAMAX [Suspect]
  3. IMURAN [Concomitant]
  4. PLAQUENIL [Concomitant]
  5. FOLIC ACID [Concomitant]
  6. SYNTHROID [Concomitant]
  7. PREMARIN [Concomitant]
  8. LOMOTIL [Concomitant]
  9. HYDROSINE [Concomitant]
  10. TRAZODONE HCL [Concomitant]

REACTIONS (1)
  - ANXIETY [None]
